FAERS Safety Report 5365360-6 (Version None)
Quarter: 2007Q2

REPORT INFORMATION
  Report Type: 
  Country: None (occurrence: None)
  Receive Date: 20070621
  Receipt Date: 20070613
  Transmission Date: 20071010
  Serious: Yes (Other)
  Sender: FDA-Public Use
  Company Number: GBWYE847713JUN07

PATIENT
  Age: 15 Year
  Sex: Female

DRUGS (5)
  1. ACETAMINOPHEN [Suspect]
     Dosage: UNKNOWN
  2. VALIUM [Suspect]
     Dosage: UNKNOWN
  3. PAROXETINE [Concomitant]
     Indication: DEPRESSION
     Dosage: 20 MG NOCTE
     Dates: start: 19960201, end: 19970701
  4. PAROXETINE [Concomitant]
     Indication: ANXIETY
  5. SEROXAT [Suspect]
     Dosage: UNKNOWN
     Dates: start: 19960217, end: 19970714

REACTIONS (1)
  - MULTIPLE DRUG OVERDOSE INTENTIONAL [None]
